FAERS Safety Report 24166992 (Version 1)
Quarter: 2024Q3

REPORT INFORMATION
  Report Type: Spontaneous
  Country: US (occurrence: US)
  Receive Date: 20240802
  Receipt Date: 20240802
  Transmission Date: 20241017
  Serious: Yes (Other)
  Sender: LABORATOIRES SERB
  Company Number: US-SERB S.A.S.-2159921

PATIENT
  Age: 30 Year
  Sex: Female

DRUGS (1)
  1. CROFAB [Suspect]
     Active Substance: AGKISTRODON PISCIVORUS IMMUNE FAB ANTIVENIN (OVINE)\CROTALIDAE POLYVALENT IMMUNE FAB (OVINE)\CROTALU
     Indication: Product used for unknown indication
     Route: 065

REACTIONS (1)
  - Anaphylactic reaction [Unknown]
